FAERS Safety Report 11096888 (Version 1)
Quarter: 2015Q2

REPORT INFORMATION
  Report Type: Spontaneous
  Country: US (occurrence: US)
  Receive Date: 20150507
  Receipt Date: 20150507
  Transmission Date: 20150821
  Serious: Yes (Other)
  Sender: FDA-Public Use
  Company Number: US-BAYER-2015-192802

PATIENT
  Age: 86 Year
  Sex: Female
  Weight: 39 kg

DRUGS (3)
  1. MIRALAX [Suspect]
     Active Substance: POLYETHYLENE GLYCOL 3350
     Indication: CONSTIPATION
     Dosage: 1 DF, ONCE, BOTTLE COUNT 10CT
     Route: 048
     Dates: start: 20150426, end: 20150426
  2. VITAMIN D [Concomitant]
     Active Substance: CHOLECALCIFEROL
  3. IRON [IRON] [Concomitant]

REACTIONS (8)
  - Arthralgia [Not Recovered/Not Resolved]
  - Dry mouth [Not Recovered/Not Resolved]
  - Musculoskeletal chest pain [Not Recovered/Not Resolved]
  - Diarrhoea [Recovered/Resolved]
  - Nephropathy [Unknown]
  - Dysgeusia [Not Recovered/Not Resolved]
  - Dyspepsia [Not Recovered/Not Resolved]
  - Pain [Not Recovered/Not Resolved]

NARRATIVE: CASE EVENT DATE: 20150428
